FAERS Safety Report 7003518-0 (Version None)
Quarter: 2010Q3

REPORT INFORMATION
  Report Type: 
  Country: None (occurrence: None)
  Receive Date: 20100916
  Receipt Date: 20100901
  Transmission Date: 20110219
  Serious: Yes (Death, Hospitalization)
  Sender: FDA-Public Use
  Company Number: 1000016169

PATIENT
  Age: 90 Year
  Sex: Male

DRUGS (11)
  1. ESCITALOPRAM [Suspect]
     Dosage: 10 MG (10 MG, 1 IN 1 D), ORAL
     Route: 048
  2. KARDEGIC (ACETYLSALICYLATE LYSINE) (POWDER) [Suspect]
     Dosage: 75 MG (75 MG, 1 IN 1 D), ORAL
     Route: 048
     Dates: end: 20100814
  3. LOVENOX [Suspect]
     Dosage: 4000 IU (4000 IU, 1 IN 1 D), SUBCUTANEOUS
     Route: 058
     Dates: start: 20100816, end: 20100818
  4. AVLOCARDYL (PROPRANOLOL) (TABLETS) (PROPRANOLOL) [Concomitant]
  5. ARICEPT (DONEPEZIL) (TABLETS) (DONEPEZIL) [Concomitant]
  6. SERESTA (OXAZEPAM) (TABLETS) (OXAZEPAM) [Concomitant]
  7. CETORNAN (ORNITHINE KETOGLUTARATE) (POWDER) (ORNITHINE KETOGLUTARATE) [Concomitant]
  8. FORLAX (MACROGOL) (POWDER) (MACROGOL) [Concomitant]
  9. DIFFU K (POTASSIUM CHLORIDE) (POTASSIUM CHLORIDE) [Concomitant]
  10. DIAFUSOR (GLYCERYL TRINITRATE) (GLYCERYL TRINITRATE) [Concomitant]
  11. DOLIPRANE (PARACETAMOL) (PARACETAMOL) [Concomitant]

REACTIONS (12)
  - BLOOD PRESSURE DIASTOLIC DECREASED [None]
  - BLOOD UREA INCREASED [None]
  - BRADYCARDIA [None]
  - COMA [None]
  - DRUG INTERACTION [None]
  - EXTRAPYRAMIDAL DISORDER [None]
  - FALL [None]
  - INFLAMMATION [None]
  - MONOCYTE COUNT INCREASED [None]
  - NEUTROPHIL COUNT INCREASED [None]
  - SUBDURAL HAEMATOMA [None]
  - WOUND [None]
